FAERS Safety Report 8174200-1 (Version None)
Quarter: 2012Q1

REPORT INFORMATION
  Report Type: 
  Country: None (occurrence: None)
  Receive Date: 20120229
  Receipt Date: 20120217
  Transmission Date: 20120608
  Serious: Yes (Hospitalization)
  Sender: FDA-Public Use
  Company Number: US-BAYER-2011-011614

PATIENT
  Age: 19 Year
  Sex: Female
  Weight: 55.782 kg

DRUGS (4)
  1. AUGMENTIN '125' [Concomitant]
     Dosage: 1 ? TEASPOON
     Route: 048
     Dates: start: 20071108
  2. YAZ [Suspect]
     Dosage: UNK
     Dates: start: 20070701, end: 20080115
  3. ROCEPHIN [Concomitant]
     Dosage: 1 G, UNK
     Route: 030
     Dates: start: 20071108
  4. CLARITHROMYCIN [Concomitant]
     Dosage: 250 MG, UNK
     Dates: start: 20071220

REACTIONS (1)
  - DEEP VEIN THROMBOSIS [None]
